FAERS Safety Report 8448570-0 (Version None)
Quarter: 2012Q2

REPORT INFORMATION
  Report Type: 
  Country: None (occurrence: None)
  Receive Date: 20120619
  Receipt Date: 20120615
  Transmission Date: 20120825
  Serious: Yes (Death)
  Sender: FDA-Public Use
  Company Number: CR-ROCHE-1079397

PATIENT
  Sex: Female

DRUGS (2)
  1. AVASTIN [Suspect]
     Indication: COLORECTAL CANCER
     Route: 042
  2. XELODA [Suspect]
     Indication: COLORECTAL CANCER
     Route: 048

REACTIONS (4)
  - DIARRHOEA [None]
  - DEHYDRATION [None]
  - RENAL FAILURE ACUTE [None]
  - ABDOMINAL PAIN [None]
